APPROVED DRUG PRODUCT: FAMOTIDINE
Active Ingredient: FAMOTIDINE
Strength: 10MG
Dosage Form/Route: TABLET;ORAL
Application: A217543 | Product #001
Applicant: MARKSANS PHARMA LTD
Approved: Mar 8, 2023 | RLD: No | RS: No | Type: OTC